FAERS Safety Report 7306327-8 (Version None)
Quarter: 2011Q1

REPORT INFORMATION
  Report Type: 
  Country: None (occurrence: None)
  Receive Date: 20110222
  Receipt Date: 20110217
  Transmission Date: 20110831
  Serious: Yes (Other)
  Sender: FDA-Public Use
  Company Number: US-ABBOTT-11P-163-0706061-00

PATIENT
  Age: 68 Year
  Sex: Male

DRUGS (3)
  1. WARFARIN SODIUM [Concomitant]
     Indication: PRODUCT USED FOR UNKNOWN INDICATION
  2. HUMIRA [Suspect]
     Indication: PSORIASIS
     Dates: start: 20090101
  3. ASPIRIN [Concomitant]
     Indication: PRODUCT USED FOR UNKNOWN INDICATION

REACTIONS (6)
  - TRIGEMINAL NEURALGIA [None]
  - RASH PRURITIC [None]
  - BACTERIAL INFECTION [None]
  - SKIN NECROSIS [None]
  - SQUAMOUS CELL CARCINOMA OF SKIN [None]
  - PAIN IN EXTREMITY [None]
